FAERS Safety Report 22260732 (Version 3)
Quarter: 2023Q2

REPORT INFORMATION
  Report Type: Spontaneous
  Country: RU (occurrence: RU)
  Receive Date: 20230427
  Receipt Date: 20230621
  Transmission Date: 20230721
  Serious: Yes (Death, Other)
  Sender: FDA-Public Use
  Company Number: RU-LUNDBECK-DKLU3061262

PATIENT
  Age: 50 Year
  Sex: Female
  Weight: 65 kg

DRUGS (4)
  1. BRINTELLIX [Suspect]
     Active Substance: VORTIOXETINE HYDROBROMIDE
     Indication: Product used for unknown indication
     Dosage: 10 MILLIGRAM, QD
     Route: 048
     Dates: start: 20230406, end: 20230418
  2. TRIMEPRAZINE [Suspect]
     Active Substance: TRIMEPRAZINE
     Indication: Product used for unknown indication
     Dosage: 10 MILLIGRAM, TID
     Route: 048
     Dates: start: 20230406
  3. TRIMEPRAZINE [Suspect]
     Active Substance: TRIMEPRAZINE
     Dosage: 5 MILLIGRAM, TID
     Route: 048
     Dates: start: 20230408, end: 20230418
  4. TRIMEPRAZINE [Concomitant]
     Active Substance: TRIMEPRAZINE
     Indication: Product used for unknown indication
     Dosage: UNK
     Route: 065

REACTIONS (3)
  - Completed suicide [Fatal]
  - Sedation [Unknown]
  - Somnolence [Unknown]

NARRATIVE: CASE EVENT DATE: 20230408
